FAERS Safety Report 21872846 (Version 10)
Quarter: 2024Q2

REPORT INFORMATION
  Report Type: Spontaneous
  Country: PT (occurrence: PT)
  Receive Date: 20230117
  Receipt Date: 20240402
  Transmission Date: 20240716
  Serious: Yes (Other)
  Sender: FDA-Public Use
  Company Number: PT-ROCHE-3252397

PATIENT
  Age: 76 Year
  Sex: Female

DRUGS (66)
  1. DOCETAXEL [Suspect]
     Active Substance: DOCETAXEL\DOCETAXEL ANHYDROUS
     Indication: HER2 positive breast cancer
     Dosage: 75 MG, Q3W (CUMULATIVE DOSE TO FIRST REACTION: 375 MG)
     Route: 042
     Dates: start: 20170227, end: 20170529
  2. ANASTROZOLE [Suspect]
     Active Substance: ANASTROZOLE
     Indication: HER2 positive breast cancer
     Dosage: 4 MG, QD
     Route: 048
     Dates: start: 201606, end: 201610
  3. ZOLEDRONIC ACID [Suspect]
     Active Substance: ZOLEDRONIC ACID
     Indication: HER2 positive breast cancer
     Dosage: 4 MG, Q4W (CUMULATIVE DOSE TO FIRST REACTION: 272 MG)
     Route: 042
     Dates: start: 20170227, end: 20220302
  4. ZOLEDRONIC ACID [Suspect]
     Active Substance: ZOLEDRONIC ACID
     Indication: Breast cancer metastatic
  5. LAPATINIB [Suspect]
     Active Substance: LAPATINIB
     Indication: HER2 positive breast cancer
     Dosage: 1000 MG, QD
     Route: 065
     Dates: start: 20200331, end: 20210831
  6. LAPATINIB [Suspect]
     Active Substance: LAPATINIB
     Indication: Breast cancer metastatic
     Dosage: 1250 MG, QD
     Route: 065
     Dates: start: 20200211, end: 20200303
  7. TAMOXIFEN [Suspect]
     Active Substance: TAMOXIFEN
     Indication: HER2 positive breast cancer
     Dosage: 20 MG, QD
     Route: 048
     Dates: start: 20170629, end: 201808
  8. CAPECITABINE [Suspect]
     Active Substance: CAPECITABINE
     Indication: HER2 positive breast cancer
     Dosage: 1800 MG, QD
     Route: 048
     Dates: start: 20200211, end: 20200302
  9. CAPECITABINE [Suspect]
     Active Substance: CAPECITABINE
     Dosage: 1300 MG, QD
     Route: 048
     Dates: start: 20200331, end: 20200602
  10. CAPECITABINE [Suspect]
     Active Substance: CAPECITABINE
     Dosage: 900 MG, QD
     Route: 048
     Dates: start: 20200616, end: 20210831
  11. TRASTUZUMAB [Suspect]
     Active Substance: TRASTUZUMAB
     Indication: HER2 positive breast cancer
     Dosage: 600 MG, Q3W
     Route: 042
     Dates: start: 20170227, end: 20170227
  12. TRASTUZUMAB [Suspect]
     Active Substance: TRASTUZUMAB
     Dosage: 600 MG, Q3W
     Route: 042
     Dates: start: 20171108, end: 20180903
  13. TRASTUZUMAB [Suspect]
     Active Substance: TRASTUZUMAB
     Dosage: 600 MG, Q3W
     Route: 042
     Dates: start: 20221109
  14. PERTUZUMAB [Suspect]
     Active Substance: PERTUZUMAB
     Indication: HER2 positive breast cancer
     Dosage: 600 ML, Q3W
     Route: 042
     Dates: start: 20170227, end: 20170927
  15. PERTUZUMAB [Suspect]
     Active Substance: PERTUZUMAB
     Dosage: 600 ML, Q3W
     Route: 042
     Dates: start: 20171108, end: 20180813
  16. ADO-TRASTUZUMAB EMTANSINE [Suspect]
     Active Substance: ADO-TRASTUZUMAB EMTANSINE
     Indication: HER2 positive breast cancer
     Dosage: 3.6 UG, TIW (CUMULATIVE DOSE TO FIRST REACTION: 64.8 UG)
     Route: 042
     Dates: start: 20180917, end: 202001
  17. ADO-TRASTUZUMAB EMTANSINE [Suspect]
     Active Substance: ADO-TRASTUZUMAB EMTANSINE
     Dosage: 4 UG, Q3W
     Route: 065
     Dates: start: 20180917, end: 202001
  18. ADO-TRASTUZUMAB EMTANSINE [Suspect]
     Active Substance: ADO-TRASTUZUMAB EMTANSINE
     Dosage: 10.8 UG, QW (3.6 UG, TIW (CUMULATIVE DOSE TO FIRST REACTION: 64.8 UG))
     Route: 042
     Dates: start: 20180917, end: 202001
  19. ADO-TRASTUZUMAB EMTANSINE [Suspect]
     Active Substance: ADO-TRASTUZUMAB EMTANSINE
     Dosage: 3.6 UG, TIW (CUMULATIVE DOSE TO FIRST REACTION: 64.8 UG)
     Route: 042
     Dates: start: 20180917, end: 202001
  20. ADO-TRASTUZUMAB EMTANSINE [Suspect]
     Active Substance: ADO-TRASTUZUMAB EMTANSINE
     Dosage: UNK (3.6 UG/INHAL, ONCE EVERY 3 WK)
     Route: 065
     Dates: start: 20180917
  21. TAXOTERE [Suspect]
     Active Substance: DOCETAXEL
     Indication: HER2 positive breast cancer
     Dosage: 75 MG/M2, TIW
     Route: 042
     Dates: start: 20170227, end: 20170529
  22. HERCEPTIN [Suspect]
     Active Substance: TRASTUZUMAB
     Indication: HER2 positive breast cancer
     Dosage: 600 MG, TIW
     Route: 042
     Dates: start: 20171108, end: 20180903
  23. HERCEPTIN [Suspect]
     Active Substance: TRASTUZUMAB
     Dosage: 600 MG, TIW
     Route: 042
     Dates: start: 20221109
  24. HERCEPTIN [Suspect]
     Active Substance: TRASTUZUMAB
     Dosage: 600 MG, TIW
     Route: 042
     Dates: start: 20170227, end: 20170927
  25. XELODA [Suspect]
     Active Substance: CAPECITABINE
     Indication: HER2 positive breast cancer
     Dosage: 1300 MG (0.5 DAY)
     Route: 048
     Dates: start: 20200331, end: 20200602
  26. XELODA [Suspect]
     Active Substance: CAPECITABINE
     Dosage: 1800 MG (0.5 DAY)
     Route: 048
     Dates: start: 20200211, end: 20200303
  27. XELODA [Suspect]
     Active Substance: CAPECITABINE
     Dosage: 900 MG, QD
     Route: 048
     Dates: start: 20200616, end: 20210831
  28. XELODA [Suspect]
     Active Substance: CAPECITABINE
     Route: 048
  29. KADCYLA [Suspect]
     Active Substance: ADO-TRASTUZUMAB EMTANSINE
     Indication: HER2 positive breast cancer
     Dosage: 3.6 UG, TIW (CUMULATIVE DOSE TO FIRST REACTION: 64.8 UG)
     Route: 042
     Dates: start: 20180917, end: 202001
  30. KADCYLA [Suspect]
     Active Substance: ADO-TRASTUZUMAB EMTANSINE
     Indication: Breast cancer metastatic
  31. PERJETA [Suspect]
     Active Substance: PERTUZUMAB
     Indication: HER2 positive breast cancer
     Dosage: 600 MG, TIW (CUMULATIVE DOSE TO FIRST REACTION: 10800 MG)
     Route: 042
     Dates: start: 20170227, end: 20170927
  32. PERJETA [Suspect]
     Active Substance: PERTUZUMAB
     Dosage: 600 ML, TIW
     Route: 042
     Dates: start: 20171108, end: 20180813
  33. NOLVADEX [Suspect]
     Active Substance: TAMOXIFEN CITRATE
     Indication: HER2 positive breast cancer
     Dosage: 20 MG, QD
     Route: 048
     Dates: start: 20170629
  34. ARIMIDEX [Suspect]
     Active Substance: ANASTROZOLE
     Indication: HER2 positive breast cancer
     Dosage: 4 MG, QD
     Route: 048
     Dates: start: 201606, end: 201610
  35. FOSFOMYCIN [Suspect]
     Active Substance: FOSFOMYCIN
     Indication: Urinary tract infection
     Dosage: UNK
     Route: 065
     Dates: start: 20180418
  36. CALCIUM\VITAMIN D [Concomitant]
     Active Substance: CALCIUM\VITAMIN D
     Indication: Product used for unknown indication
     Dosage: UNK
     Route: 065
  37. TRAMADOL [Concomitant]
     Active Substance: TRAMADOL\TRAMADOL HYDROCHLORIDE
     Indication: Pain
     Dosage: UNK
     Route: 065
  38. OFLOXACIN [Concomitant]
     Active Substance: OFLOXACIN
     Indication: Product used for unknown indication
     Dosage: 200 MG
     Route: 065
     Dates: start: 20170529
  39. NOLOTIL [Concomitant]
     Indication: Product used for unknown indication
     Dosage: UNK
     Route: 065
  40. ACETAMINOPHEN [Concomitant]
     Active Substance: ACETAMINOPHEN
     Indication: Pain
     Dosage: UNK
     Route: 065
  41. CODIPRONT [Concomitant]
     Indication: Cough
     Dosage: UNK
     Route: 065
  42. ARCOXIA [Concomitant]
     Active Substance: ETORICOXIB
     Indication: Product used for unknown indication
     Dosage: UNK
     Route: 065
  43. XARELTO [Concomitant]
     Active Substance: RIVAROXABAN
     Indication: Product used for unknown indication
     Dosage: 20 MG, QD
     Route: 065
     Dates: start: 20161228
  44. AMOXICILLIN [Concomitant]
     Active Substance: AMOXICILLIN
     Indication: Product used for unknown indication
     Dosage: UNK
     Route: 065
     Dates: start: 202101
  45. MAGNESIUM [Concomitant]
     Active Substance: MAGNESIUM
     Indication: Hypomagnesaemia
     Dosage: UNK
     Route: 065
     Dates: start: 20180220
  46. LOPERAMIDE [Concomitant]
     Active Substance: LOPERAMIDE
     Indication: Diarrhoea
     Dosage: UNK
     Route: 065
  47. ETHYL LOFLAZEPATE [Concomitant]
     Active Substance: ETHYL LOFLAZEPATE
     Indication: Product used for unknown indication
     Dosage: 40 MG
     Route: 065
     Dates: start: 2016
  48. OMEPRAZOLE [Concomitant]
     Active Substance: OMEPRAZOLE
     Indication: Product used for unknown indication
     Dosage: 20 MG, QD
     Route: 065
     Dates: start: 2016
  49. VALACYCLOVIR HYDROCHLORIDE [Concomitant]
     Active Substance: VALACYCLOVIR HYDROCHLORIDE
     Indication: Product used for unknown indication
     Dosage: UNK
     Route: 065
     Dates: start: 20180328, end: 20180418
  50. METFORMIN [Concomitant]
     Active Substance: METFORMIN HYDROCHLORIDE
     Indication: Product used for unknown indication
     Dosage: 800 MG, QD
     Route: 065
     Dates: start: 2016
  51. METFORMIN [Concomitant]
     Active Substance: METFORMIN HYDROCHLORIDE
     Dosage: 850 MG(0.5 DAY)
     Route: 065
     Dates: start: 2016
  52. POTASSIUM [Concomitant]
     Active Substance: POTASSIUM
     Indication: Hypokalaemia
     Dosage: UNK
     Route: 065
  53. BISOPROLOL [Concomitant]
     Active Substance: BISOPROLOL\BISOPROLOL FUMARATE
     Indication: Product used for unknown indication
     Dosage: 2.5 MG, QD
     Route: 065
     Dates: start: 2016
  54. ZALDIAR [Concomitant]
     Active Substance: ACETAMINOPHEN\TRAMADOL HYDROCHLORIDE
     Indication: Product used for unknown indication
     Dosage: UNK
     Route: 065
     Dates: start: 20190326
  55. METOCLOPRAMIDE [Concomitant]
     Active Substance: METOCLOPRAMIDE
     Indication: Product used for unknown indication
     Dosage: UNK
     Route: 065
  56. FUCIDINE [Concomitant]
     Indication: Product used for unknown indication
     Dosage: UNK
     Route: 065
     Dates: start: 20200110
  57. POLYETHYLENE GLYCOLS [Concomitant]
     Active Substance: POLYETHYLENE GLYCOLS
     Indication: Constipation
     Dosage: UNK, QD (DAILY)
     Route: 065
     Dates: start: 20211116
  58. BACTRIM [Concomitant]
     Active Substance: SULFAMETHOXAZOLE\TRIMETHOPRIM
     Indication: Urinary tract infection
     Dosage: UNK, QMO (ONCE EVERY 1 MO)
     Route: 065
     Dates: start: 201802, end: 201803
  59. ESOMEPRAZOLE [Concomitant]
     Active Substance: ESOMEPRAZOLE
     Indication: Product used for unknown indication
     Dosage: UNK, QD (DAILY)
     Route: 065
     Dates: start: 20200324
  60. BILASTINE [Concomitant]
     Active Substance: BILASTINE
     Indication: Product used for unknown indication
     Dosage: UNK
     Route: 065
     Dates: start: 20180418
  61. FLUXETIN [Concomitant]
     Indication: Depression
     Dosage: UNK
     Route: 065
     Dates: start: 20170926
  62. SIMVASTATIN [Concomitant]
     Active Substance: SIMVASTATIN
     Indication: Product used for unknown indication
     Dosage: ONGOING = CHECKED
     Route: 065
     Dates: start: 20160615
  63. ISONIAZID [Concomitant]
     Active Substance: ISONIAZID
     Indication: Product used for unknown indication
     Dosage: 300 MG, QD
     Route: 065
     Dates: start: 20170124, end: 20171010
  64. MECLOPRINA [Concomitant]
     Indication: Product used for unknown indication
     Dosage: UNK
     Route: 065
  65. MAGNESIO [Concomitant]
     Indication: Hypomagnesaemia
     Dosage: UNK
     Route: 065
     Dates: start: 20180220
  66. ZOLEDRONIC ACID [Concomitant]
     Active Substance: ZOLEDRONIC ACID
     Indication: Breast cancer metastatic
     Dosage: 4 MG, Q4W
     Route: 065
     Dates: start: 20170227

REACTIONS (3)
  - Pneumonitis [Recovered/Resolved]
  - Anaemia [Recovered/Resolved]
  - Neutropenia [Recovered/Resolved]

NARRATIVE: CASE EVENT DATE: 20211223
